FAERS Safety Report 5289124-7 (Version None)
Quarter: 2007Q1

REPORT INFORMATION
  Report Type: 
  Country: None (occurrence: None)
  Receive Date: 20070124
  Receipt Date: 20061110
  Transmission Date: 20070707
  Serious: Yes (Other)
  Sender: FDA-Public Use
  Company Number: US200611002814

PATIENT
  Age: 86 Year
  Sex: Female

DRUGS (2)
  1. FORTEO [Suspect]
     Indication: OSTEOPOROSIS
     Dates: start: 20040701
  2. FORTEO [Concomitant]

REACTIONS (5)
  - CONTUSION [None]
  - MEMORY IMPAIRMENT [None]
  - SKIN LACERATION [None]
  - SOMNOLENCE [None]
  - SYNCOPE [None]
